FAERS Safety Report 11217480 (Version 1)
Quarter: 2015Q2

REPORT INFORMATION
  Report Type: Spontaneous
  Country: US (occurrence: None)
  Receive Date: 20150623
  Receipt Date: 20150623
  Transmission Date: 20150821
  Serious: Yes (Life-Threatening)
  Sender: FDA-Public Use
  Company Number: None

PATIENT
  Age: 67 Year
  Sex: Female
  Weight: 74.84 kg

DRUGS (2)
  1. GADAVIST [Suspect]
     Active Substance: GADOBUTROL
     Indication: ACOUSTIC NEUROMA
     Route: 042
     Dates: start: 20150618, end: 20150618
  2. GADAVIST [Suspect]
     Active Substance: GADOBUTROL
     Indication: SCAN WITH CONTRAST
     Route: 042
     Dates: start: 20150618, end: 20150618

REACTIONS (2)
  - Contrast media allergy [None]
  - Anaphylactic shock [None]

NARRATIVE: CASE EVENT DATE: 20150618
